FAERS Safety Report 8492357-X (Version None)
Quarter: 2012Q3

REPORT INFORMATION
  Report Type: 
  Country: None (occurrence: None)
  Receive Date: 20120706
  Receipt Date: 20120702
  Transmission Date: 20120928
  Serious: Yes (Death, Hospitalization)
  Sender: FDA-Public Use
  Company Number: NL-GENZYME-CAMP-1000968

PATIENT
  Age: 73 Year
  Sex: Male

DRUGS (8)
  1. CYCLOPHOSPHAMIDE [Suspect]
     Indication: T-CELL LYMPHOMA
     Dosage: 1500 MG, UNK
     Route: 042
     Dates: start: 20090625, end: 20090903
  2. VINCRISTINE [Suspect]
     Indication: T-CELL LYMPHOMA
     Dosage: 1 MG, UNK
     Route: 042
     Dates: start: 20090617, end: 20090903
  3. CIPROFLOXACIN [Concomitant]
     Indication: URINARY TRACT INFECTION
     Dosage: UNK
     Route: 042
     Dates: start: 20090828, end: 20090903
  4. PREDNISONE [Suspect]
     Indication: T-CELL LYMPHOMA
     Dosage: 100 MG, UNK
     Route: 048
     Dates: start: 20090617, end: 20090910
  5. DOXORUBICIN HCL [Suspect]
     Indication: T-CELL LYMPHOMA
     Dosage: 100 MG, UNK
     Route: 042
     Dates: start: 20090625, end: 20090903
  6. CAMPATH [Suspect]
     Indication: T-CELL LYMPHOMA
     Dosage: 30 MG, Q2W
     Route: 058
     Dates: start: 20090625, end: 20090904
  7. PEGFILGRASTIM [Suspect]
     Indication: T-CELL LYMPHOMA
     Dosage: 6 MG, Q2W
     Route: 058
     Dates: start: 20090629, end: 20090906
  8. PEGFILGRASTIM [Suspect]
     Indication: PROPHYLAXIS

REACTIONS (9)
  - OESOPHAGITIS [None]
  - ILEUS PARALYTIC [None]
  - CARDIAC FAILURE [None]
  - ATRIAL FIBRILLATION [None]
  - FEBRILE NEUTROPENIA [None]
  - PNEUMONIA BACTERIAL [None]
  - MULTI-ORGAN FAILURE [None]
  - RESPIRATORY FAILURE [None]
  - STENOTROPHOMONAS INFECTION [None]
